FAERS Safety Report 4515718-X (Version None)
Quarter: 2004Q4

REPORT INFORMATION
  Report Type: 
  Country: None (occurrence: None)
  Receive Date: 20040930
  Receipt Date: 20040615
  Transmission Date: 20050328
  Serious: No
  Sender: FDA-Public Use
  Company Number: USA-2004-0015617

PATIENT
  Age: 61 Year
  Sex: Female

DRUGS (1)
  1. SPECTRACEF [Suspect]

REACTIONS (1)
  - CLOSTRIDIAL INFECTION [None]
